FAERS Safety Report 8891230 (Version 3)
Quarter: 2014Q2

REPORT INFORMATION
  Report Type: Spontaneous
  Country: US (occurrence: US)
  Receive Date: 20121107
  Receipt Date: 20131024
  Transmission Date: 20141212
  Serious: No
  Sender: FDA-Public Use
  Company Number: US-PFIZER INC-2012278074

PATIENT
  Age: 61 Year
  Sex: Male
  Weight: 109 kg

DRUGS (1)
  1. ADVIL PM [Suspect]
     Indication: SLEEP DISORDER
     Dosage: 2 TABLETS OF 200/38 MG, DAILY
     Route: 048
     Dates: start: 201204

REACTIONS (1)
  - Drug ineffective [Not Recovered/Not Resolved]
